FAERS Safety Report 10699075 (Version 1)
Quarter: 2015Q1

REPORT INFORMATION
  Report Type: Report from Study
  Country: CO (occurrence: CO)
  Receive Date: 20150108
  Receipt Date: 20150108
  Transmission Date: 20150721
  Serious: Yes (Death)
  Sender: FDA-Public Use
  Company Number: CO-ASTRAZENECA-2015SE00404

PATIENT
  Age: 22318 Day
  Sex: Male

DRUGS (1)
  1. BRILINTA [Suspect]
     Active Substance: TICAGRELOR
     Indication: ACUTE CORONARY SYNDROME
     Route: 048
     Dates: start: 20141011

REACTIONS (6)
  - Hypovolaemic shock [Fatal]
  - Haemorrhage [None]
  - Angina unstable [Fatal]
  - Coronary artery dissection [Fatal]
  - Procedural complication [Fatal]
  - Aortic dissection [Fatal]

NARRATIVE: CASE EVENT DATE: 20141219
